FAERS Safety Report 9102987 (Version 3)
Quarter: 2013Q2

REPORT INFORMATION
  Report Type: Spontaneous
  Country: JP (occurrence: None)
  Receive Date: 20130125
  Receipt Date: 20130418
  Transmission Date: 20140414
  Serious: No
  Sender: FDA-Public Use
  Company Number: SPI201300028

PATIENT
  Age: 81 Year
  Sex: Female
  Weight: 50 kg

DRUGS (2)
  1. AMITIZA [Suspect]
     Indication: CONSTIPATION
     Route: 048
     Dates: start: 20130107, end: 20130117
  2. HUSCODE (CHLORPHENAMINE MALEATE, DIHYDROCODEINE PHOSPHATE, METHYLEPHEDRINE HYDROCHLORIDE-DL) [Concomitant]

REACTIONS (5)
  - Dyspnoea [None]
  - Oedema [None]
  - Choking sensation [None]
  - Oedema peripheral [None]
  - Face oedema [None]
